FAERS Safety Report 14818600 (Version 1)
Quarter: 2018Q2

REPORT INFORMATION
  Report Type: Spontaneous
  Country: DE (occurrence: DE)
  Receive Date: 20180427
  Receipt Date: 20180427
  Transmission Date: 20180711
  Serious: Yes (Hospitalization)
  Sender: FDA-Public Use
  Company Number: DE-MERCK KGAA-2046706

PATIENT
  Age: 41 Year
  Sex: Male
  Weight: 80 kg

DRUGS (10)
  1. ALLOPURINOL. [Suspect]
     Active Substance: ALLOPURINOL
     Route: 048
  2. TESTOSTERON [Suspect]
     Active Substance: TESTOSTERONE
     Route: 030
  3. HYDROCORTISONE. [Suspect]
     Active Substance: HYDROCORTISONE
     Route: 048
  4. LEVETIRACETAM. [Suspect]
     Active Substance: LEVETIRACETAM
     Route: 048
  5. NOVOTHYROX [Suspect]
     Active Substance: LEVOTHYROXINE SODIUM
     Indication: PRODUCT USED FOR UNKNOWN INDICATION
     Route: 048
  6. DESMOPRESSIN [Suspect]
     Active Substance: DESMOPRESSIN
     Route: 048
  7. VITAMIN B COMPLEX [Suspect]
     Active Substance: CYANOCOBALAMIN\DEXPANTHENOL\NIACINAMIDE\PYRIDOXINE HYDROCHLORIDE\RIBOFLAVIN 5^-PHOSPHATE SODIUM\THIAMINE HYDROCHLORIDE\VITAMIN B COMPLEX
     Route: 048
  8. PANTOPRAZOLE [Suspect]
     Active Substance: PANTOPRAZOLE
     Route: 048
  9. NATRIUMCHLORID NORIDEM [Suspect]
     Active Substance: SODIUM CHLORIDE
     Route: 048
  10. AMLODIPIN [Suspect]
     Active Substance: AMLODIPINE BESYLATE
     Route: 048

REACTIONS (6)
  - Oedema peripheral [Unknown]
  - Cardiovascular disorder [None]
  - Liver disorder [None]
  - Inflammation [None]
  - Ascites [Unknown]
  - Gamma-glutamyltransferase increased [None]
